FAERS Safety Report 7552724 (Version 3)
Quarter: 2012Q4

REPORT INFORMATION
  Report Type: 
  Country: US (occurrence: US)
  Receive Date: 20100825
  Receipt Date: 20121128
  Transmission Date: 20130627
  Serious: Yes (Hospitalization, Other)
  Sender: FDA-Public Use
  Company Number: US-BAYER-201031166NA

PATIENT
  Age: 34 Year
  Sex: Female
  Weight: 64.85 kg

DRUGS (12)
  1. YAZ [Suspect]
     Indication: ACNE
     Dosage: UNK
     Route: 048
     Dates: start: 200810, end: 200912
  2. YAZ [Suspect]
     Indication: PREMENSTRUAL SYNDROME
     Dosage: UNK
     Dates: end: 200912
  3. YAZ [Suspect]
     Indication: OVARIAN CYST
  4. EXCEDRIN [CAFFEINE,PARACETAMOL] [Concomitant]
  5. MOTRIN [Concomitant]
  6. ADVIL [Concomitant]
  7. ADVAIR DISKUS [Concomitant]
  8. MIDRIN [Concomitant]
  9. CAPOTEN [Concomitant]
     Dosage: 12.5 mg, UNK
     Dates: start: 200912, end: 201002
  10. PEPCID [Concomitant]
     Dosage: 20 mg, BID
  11. CO ENZYME Q10 [Concomitant]
     Dosage: 100 mg, BID
  12. PRENATAL W/FOLIC ACID /02279001/ [Concomitant]
     Dosage: UNK UNK, BID

REACTIONS (8)
  - Coronary artery dissection [None]
  - Myocardial infarction [None]
  - Acute coronary syndrome [None]
  - Pain [None]
  - Coronary artery disease [None]
  - Disability [None]
  - General physical health deterioration [None]
  - Embolism [None]
